FAERS Safety Report 14096291 (Version 4)
Quarter: 2022Q1

REPORT INFORMATION
  Report Type: Report from Study
  Country: FR (occurrence: None)
  Receive Date: 20171017
  Receipt Date: 20220126
  Transmission Date: 20220423
  Serious: Yes (Hospitalization)
  Sender: FDA-Public Use
  Company Number: FR-ROCHE-2006602

PATIENT
  Age: 72 Year
  Sex: Female

DRUGS (13)
  1. ATEZOLIZUMAB [Suspect]
     Active Substance: ATEZOLIZUMAB
     Indication: Ovarian cancer
     Dosage: DAY 1?LAST DOSE OF BLINDED ATEZOLIZUMAB ADMINISTERED PRIOR TO AE: 10/AUG/2017
     Route: 041
     Dates: start: 20170317, end: 20170828
  2. ATEZOLIZUMAB [Suspect]
     Active Substance: ATEZOLIZUMAB
     Dosage: THERAPY WITH BLINDED ATEZOLIZUMAB WAS REINTRODUCED
     Route: 041
     Dates: start: 20170925
  3. BEVACIZUMAB [Suspect]
     Active Substance: BEVACIZUMAB
     Indication: Ovarian cancer
     Dosage: DAY 1?LAST DOSE OF BEVACIZUMAB ADMINISTERED PRIOR TO AE: 10/AUG/2017
     Route: 042
     Dates: start: 20170317, end: 20170828
  4. CARBOPLATIN [Suspect]
     Active Substance: CARBOPLATIN
     Indication: Ovarian cancer
     Dosage: AREA UNDER CURVE (AUC)-5 DAY 1?ON 30-JUN-2017, THE PATIENT RECEIVED THE LAST DOSE OF CHEMOTHERAPY
     Route: 042
     Dates: start: 20170317, end: 20170630
  5. PACLITAXEL [Suspect]
     Active Substance: PACLITAXEL
     Indication: Ovarian cancer
     Dosage: DAY 1?ON 30-JUN-2017, THE PATIENT RECEIVED THE LAST DOSE OF CHEMOTHERAPY
     Route: 042
     Dates: start: 20170317, end: 20170630
  6. LOSARTAN [Concomitant]
     Active Substance: LOSARTAN
  7. LEVOTHYROXINE [Concomitant]
     Active Substance: LEVOTHYROXINE
  8. NEBIVOLOL [Concomitant]
     Active Substance: NEBIVOLOL
  9. OMEPRAZOLE [Concomitant]
     Active Substance: OMEPRAZOLE
  10. XANAX [Concomitant]
     Active Substance: ALPRAZOLAM
  11. CIPROFLOXACIN [Concomitant]
     Active Substance: CIPROFLOXACIN
  12. PHLOROGLUCINOL\1,3,5-TRIMETHOXYBENZENE [Concomitant]
     Active Substance: PHLOROGLUCINOL\1,3,5-TRIMETHOXYBENZENE
  13. ALPRAZOLAM [Concomitant]
     Active Substance: ALPRAZOLAM

REACTIONS (2)
  - Glomerular vascular disorder [Recovered/Resolved with Sequelae]
  - Thrombotic microangiopathy [Recovered/Resolved with Sequelae]

NARRATIVE: CASE EVENT DATE: 20170823
